FAERS Safety Report 15554850 (Version 7)
Quarter: 2021Q2

REPORT INFORMATION
  Report Type: Report from Study
  Country: DE (occurrence: DE)
  Receive Date: 20181026
  Receipt Date: 20210614
  Transmission Date: 20210716
  Serious: Yes (Death, Life-Threatening, Hospitalization, Other)
  Sender: FDA-Public Use
  Company Number: PHHY2018DE136545

PATIENT
  Age: 80 Year
  Sex: Male
  Weight: 53 kg

DRUGS (50)
  1. TAFINLAR [Suspect]
     Active Substance: DABRAFENIB MESYLATE
     Dosage: 150 MG, IN THE EVENING (75 MG 0?0?2)
     Route: 048
     Dates: start: 20180904, end: 20180904
  2. METOCLOPRAMIDE. [Concomitant]
     Active Substance: METOCLOPRAMIDE
     Dosage: 10 MG, BID
     Route: 048
     Dates: start: 20180907, end: 20180907
  3. RINGERS SOLUTION [Concomitant]
     Active Substance: CALCIUM CHLORIDE\POTASSIUM CHLORIDE\SODIUM CHLORIDE
     Dosage: 500 ML, QD
     Route: 042
     Dates: start: 20180904, end: 20180904
  4. RINGERS SOLUTION [Concomitant]
     Active Substance: CALCIUM CHLORIDE\POTASSIUM CHLORIDE\SODIUM CHLORIDE
     Dosage: 1000 ML, QD
     Route: 042
     Dates: start: 20180911, end: 20180912
  5. LACTULOSE. [Concomitant]
     Active Substance: LACTULOSE
     Indication: PRODUCT USED FOR UNKNOWN INDICATION
     Dosage: 10 ML, QD
     Route: 048
     Dates: start: 20180908, end: 20180909
  6. CEFTRIAXONE. [Concomitant]
     Active Substance: CEFTRIAXONE
     Indication: PRODUCT USED FOR UNKNOWN INDICATION
     Dosage: 2 G, QD
     Route: 042
     Dates: start: 20180919, end: 20180922
  7. MEROPENEM. [Concomitant]
     Active Substance: MEROPENEM
     Indication: PRODUCT USED FOR UNKNOWN INDICATION
     Dosage: 1 DF, BID
     Route: 042
     Dates: start: 20180923, end: 20180923
  8. METAMIZOLE [Concomitant]
     Active Substance: METAMIZOLE
     Indication: PRODUCT USED FOR UNKNOWN INDICATION
     Dosage: 5 G, QD
     Route: 042
     Dates: start: 20180926, end: 20181005
  9. TAFINLAR [Suspect]
     Active Substance: DABRAFENIB MESYLATE
     Dosage: UNK, BID
     Route: 048
     Dates: start: 20180924
  10. PIPERACILLIN AND TAZOBACTAM [Concomitant]
     Active Substance: PIPERACILLIN SODIUM\TAZOBACTAM SODIUM
     Dosage: 4.5 G, TID
     Route: 042
     Dates: start: 20180925, end: 20181001
  11. HYDROMORPHONE [Concomitant]
     Active Substance: HYDROMORPHONE
     Indication: PRODUCT USED FOR UNKNOWN INDICATION
     Dosage: 0.1 MG/H, QD
     Route: 042
     Dates: start: 20180924
  12. METOCLOPRAMIDE. [Concomitant]
     Active Substance: METOCLOPRAMIDE
     Indication: PRODUCT USED FOR UNKNOWN INDICATION
     Dosage: 10 MG, QD
     Route: 048
     Dates: start: 20180906, end: 20180906
  13. RINGERS SOLUTION [Concomitant]
     Active Substance: CALCIUM CHLORIDE\POTASSIUM CHLORIDE\SODIUM CHLORIDE
     Indication: PRODUCT USED FOR UNKNOWN INDICATION
     Dosage: 1000 ML, QD
     Route: 042
     Dates: start: 20180901, end: 20180902
  14. BIFITERAL [Concomitant]
     Active Substance: LACTULOSE
     Dosage: 10 ML, QD
     Route: 048
     Dates: start: 20180904, end: 20180905
  15. LACTULOSE. [Concomitant]
     Active Substance: LACTULOSE
     Dosage: 10 ML, QD
     Route: 048
     Dates: start: 20180927, end: 20181002
  16. TRAMETINIB [Suspect]
     Active Substance: TRAMETINIB
     Indication: METASTATIC MALIGNANT MELANOMA
     Dosage: 2 MG, QD
     Route: 048
     Dates: start: 20180824, end: 20180830
  17. TRAMETINIB [Suspect]
     Active Substance: TRAMETINIB
     Dosage: 2 MG, QD
     Route: 048
     Dates: start: 20180905, end: 20180918
  18. PIPERACILLIN AND TAZOBACTAM [Concomitant]
     Active Substance: PIPERACILLIN SODIUM\TAZOBACTAM SODIUM
     Indication: PRODUCT USED FOR UNKNOWN INDICATION
     Dosage: 4.5 G, QD
     Route: 042
     Dates: start: 20180924, end: 20180924
  19. LAXOBERAL [Concomitant]
     Active Substance: SODIUM PICOSULFATE
     Indication: PRODUCT USED FOR UNKNOWN INDICATION
     Dosage: 12 DRP, QD
     Route: 048
     Dates: start: 20180907, end: 20180908
  20. LAXOBERAL [Concomitant]
     Active Substance: SODIUM PICOSULFATE
     Dosage: 12 DRP, QD
     Route: 048
     Dates: start: 20180912, end: 20180923
  21. LACTULOSE. [Concomitant]
     Active Substance: LACTULOSE
     Dosage: 10 ML, QD
     Route: 048
     Dates: start: 20180913, end: 20180923
  22. DIMENHYDRINATE. [Concomitant]
     Active Substance: DIMENHYDRINATE
     Indication: PRODUCT USED FOR UNKNOWN INDICATION
     Dosage: 1 DF, QD (50 MG)
     Route: 048
     Dates: start: 20180923, end: 20180923
  23. DEXAMETHASONE. [Concomitant]
     Active Substance: DEXAMETHASONE
     Dosage: 20 MG, QD
     Route: 042
     Dates: start: 20180911, end: 20180913
  24. ENOXAPARIN [Concomitant]
     Active Substance: ENOXAPARIN
     Indication: PRODUCT USED FOR UNKNOWN INDICATION
     Dosage: 20 MG, QD
     Route: 058
     Dates: start: 20180901, end: 20180904
  25. LAXOBERAL [Concomitant]
     Active Substance: SODIUM PICOSULFATE
     Dosage: 12 DRP, QD
     Route: 048
     Dates: start: 20180927, end: 20181001
  26. LACTULOSE. [Concomitant]
     Active Substance: LACTULOSE
     Dosage: 10 ML, BID
     Route: 048
     Dates: start: 20180912, end: 20180912
  27. MEROPENEM. [Concomitant]
     Active Substance: MEROPENEM
     Dosage: 1 DF, TID
     Route: 042
     Dates: start: 20180924, end: 20180925
  28. DEXAMETHASONE. [Concomitant]
     Active Substance: DEXAMETHASONE
     Dosage: 4 MG, QD
     Route: 048
     Dates: start: 20180914, end: 20180915
  29. TAFINLAR [Suspect]
     Active Substance: DABRAFENIB MESYLATE
     Dosage: 75 MG, BID (IN THE MORNING)
     Route: 048
     Dates: start: 20180922, end: 20180923
  30. RINGERS SOLUTION [Concomitant]
     Active Substance: CALCIUM CHLORIDE\POTASSIUM CHLORIDE\SODIUM CHLORIDE
     Dosage: 500 ML, QD
     Route: 042
     Dates: start: 20180908, end: 20180910
  31. RINGERS SOLUTION [Concomitant]
     Active Substance: CALCIUM CHLORIDE\POTASSIUM CHLORIDE\SODIUM CHLORIDE
     Dosage: 500 ML, QD
     Route: 042
     Dates: start: 20180913, end: 20180927
  32. LACTULOSE. [Concomitant]
     Active Substance: LACTULOSE
     Dosage: 10 ML, QD
     Route: 048
     Dates: start: 20180911, end: 20180911
  33. DEXAMETHASONE. [Concomitant]
     Active Substance: DEXAMETHASONE
     Indication: MALIGNANT MELANOMA
     Dosage: 8 MG, QD
     Route: 048
     Dates: start: 20180908, end: 20180911
  34. DEXAMETHASONE. [Concomitant]
     Active Substance: DEXAMETHASONE
     Dosage: 8 MG, QD
     Route: 048
     Dates: start: 20180914, end: 20180926
  35. DEXAMETHASONE. [Concomitant]
     Active Substance: DEXAMETHASONE
     Dosage: 4 MG, QD
     Route: 048
     Dates: start: 20180927, end: 20181004
  36. SODIUM CHLORIDE. [Concomitant]
     Active Substance: SODIUM CHLORIDE
     Indication: PRODUCT USED FOR UNKNOWN INDICATION
     Dosage: 500 ML, QD
     Route: 042
     Dates: start: 20180926
  37. TAFINLAR [Suspect]
     Active Substance: DABRAFENIB MESYLATE
     Dosage: 150 MG, BID
     Route: 048
     Dates: start: 20180905, end: 20180918
  38. TAFINLAR [Suspect]
     Active Substance: DABRAFENIB MESYLATE
     Dosage: 75 MG, BID (IN THE MORNING)
     Route: 048
     Dates: start: 20180919, end: 20180919
  39. TRAMETINIB [Suspect]
     Active Substance: TRAMETINIB
     Dosage: 2 MG, QD
     Route: 048
     Dates: start: 20180920, end: 20180921
  40. TRAMETINIB [Suspect]
     Active Substance: TRAMETINIB
     Dosage: UNK, QD
     Route: 048
     Dates: start: 20180924
  41. BIFITERAL [Concomitant]
     Active Substance: LACTULOSE
     Dosage: 12 ML, QD
     Route: 048
     Dates: start: 20180902, end: 20180902
  42. TRAMETINIB [Suspect]
     Active Substance: TRAMETINIB
     Dosage: 2 MG, QD
     Route: 048
     Dates: start: 20180919, end: 20180919
  43. TRAMETINIB [Suspect]
     Active Substance: TRAMETINIB
     Dosage: 2 MG, QD
     Route: 048
     Dates: start: 20180922, end: 20180923
  44. METOCLOPRAMIDE. [Concomitant]
     Active Substance: METOCLOPRAMIDE
     Dosage: 10 MG, QD
     Route: 048
     Dates: start: 20180918, end: 20180918
  45. RINGERS SOLUTION [Concomitant]
     Active Substance: CALCIUM CHLORIDE\POTASSIUM CHLORIDE\SODIUM CHLORIDE
     Dosage: 1000 ML, QD
     Route: 042
     Dates: start: 20180905, end: 20180907
  46. BIFITERAL [Concomitant]
     Active Substance: LACTULOSE
     Indication: FAECES HARD
     Dosage: 1 DF, QD
     Route: 048
     Dates: start: 20180301
  47. NEUROCIL [Concomitant]
     Indication: PRODUCT USED FOR UNKNOWN INDICATION
     Dosage: 1 DRP, QD
     Route: 048
     Dates: start: 20180920, end: 20180920
  48. DEXAMETHASONE. [Concomitant]
     Active Substance: DEXAMETHASONE
     Dosage: 8 MG, QD
     Route: 048
     Dates: start: 20180913, end: 20180914
  49. TAFINLAR [Suspect]
     Active Substance: DABRAFENIB MESYLATE
     Indication: METASTATIC MALIGNANT MELANOMA
     Dosage: 150 MG, BID
     Route: 048
     Dates: start: 20180824, end: 20180830
  50. TAFINLAR [Suspect]
     Active Substance: DABRAFENIB MESYLATE
     Dosage: 150 MG, BID
     Route: 048
     Dates: start: 20180920, end: 20180921

REACTIONS (32)
  - Asthenia [Not Recovered/Not Resolved]
  - Intestinal perforation [Fatal]
  - Asthenia [Recovered/Resolved]
  - Nausea [Recovered/Resolved]
  - Pyrexia [Recovered/Resolved]
  - Vomiting [Recovered/Resolved]
  - Decreased appetite [Recovered/Resolved]
  - Diarrhoea [Recovered/Resolved]
  - Abdominal pain [Not Recovered/Not Resolved]
  - Vertigo [Not Recovered/Not Resolved]
  - General physical health deterioration [Recovered/Resolved]
  - Confusional state [Not Recovered/Not Resolved]
  - Mood altered [Not Recovered/Not Resolved]
  - C-reactive protein increased [Not Recovered/Not Resolved]
  - Vertigo [Recovered/Resolved]
  - Gait disturbance [Not Recovered/Not Resolved]
  - Visual impairment [Recovered/Resolved]
  - Pyrexia [Recovered/Resolved]
  - Decreased appetite [Recovered/Resolved]
  - Incontinence [Not Recovered/Not Resolved]
  - Mucosal dryness [Not Recovered/Not Resolved]
  - Urinary retention [Not Recovered/Not Resolved]
  - Nausea [Recovered/Resolved]
  - Vertigo [Recovered/Resolved]
  - Vertigo [Recovered/Resolved]
  - Peritonitis [Not Recovered/Not Resolved]
  - General physical health deterioration [Not Recovered/Not Resolved]
  - Pyrexia [Recovered/Resolved]
  - Fall [Recovered/Resolved]
  - Fatigue [Recovered/Resolved]
  - Nausea [Not Recovered/Not Resolved]
  - Conjunctival abrasion [Unknown]

NARRATIVE: CASE EVENT DATE: 20180827
